FAERS Safety Report 5704564-7 (Version None)
Quarter: 2008Q2

REPORT INFORMATION
  Report Type: 
  Country: None (occurrence: None)
  Receive Date: 20080411
  Receipt Date: 20080411
  Transmission Date: 20081010
  Serious: No
  Sender: FDA-Public Use
  Company Number: None

PATIENT
  Age: 39 Year
  Sex: Female
  Weight: 52.1637 kg

DRUGS (1)
  1. NUVARING [Suspect]
     Indication: CONTRACEPTION
     Dosage: ONLY ONE AVAILABLE  Q 28 DAYS VAG
     Route: 067
     Dates: start: 20080407, end: 20080409

REACTIONS (4)
  - FUNGAL INFECTION [None]
  - IRRITABILITY [None]
  - URINARY INCONTINENCE [None]
  - WEIGHT INCREASED [None]
